FAERS Safety Report 9338628 (Version 2)
Quarter: 2013Q2

REPORT INFORMATION
  Report Type: Spontaneous
  Country: IE (occurrence: IE)
  Receive Date: 20130610
  Receipt Date: 20130614
  Transmission Date: 20140414
  Serious: Yes (Other)
  Sender: FDA-Public Use
  Company Number: IE-JNJFOC-20130520705

PATIENT
  Sex: Female
  Weight: 68.8 kg

DRUGS (4)
  1. REMICADE [Suspect]
     Indication: PRODUCT USED FOR UNKNOWN INDICATION
     Route: 042
  2. LEFLUNOMIDE [Concomitant]
     Route: 065
  3. NAPROXEN [Concomitant]
     Route: 065
  4. LANSOPRAZOLE [Concomitant]
     Route: 065

REACTIONS (3)
  - Adverse event [Unknown]
  - Hypertension [Unknown]
  - Dyspnoea [Unknown]
